FAERS Safety Report 7786618-7 (Version None)
Quarter: 2011Q3

REPORT INFORMATION
  Report Type: 
  Country: None (occurrence: None)
  Receive Date: 20110929
  Receipt Date: 20110919
  Transmission Date: 20111222
  Serious: Yes (Hospitalization)
  Sender: FDA-Public Use
  Company Number: GB-ELI_LILLY_AND_COMPANY-GB201109004805

PATIENT
  Age: 25 Year
  Sex: Male
  Weight: 85 kg

DRUGS (2)
  1. OLANZAPINE [Suspect]
     Indication: BORDERLINE PERSONALITY DISORDER
     Dosage: 10 MG, UNK
     Dates: start: 20110824
  2. OLANZAPINE [Suspect]
     Dosage: 20 MG, UNK
     Dates: start: 20110830

REACTIONS (3)
  - ABDOMINAL PAIN UPPER [None]
  - OFF LABEL USE [None]
  - WEIGHT INCREASED [None]
